FAERS Safety Report 8210516-8 (Version None)
Quarter: 2012Q1

REPORT INFORMATION
  Report Type: 
  Country: None (occurrence: None)
  Receive Date: 20120314
  Receipt Date: 20120221
  Transmission Date: 20120608
  Serious: No
  Sender: FDA-Public Use
  Company Number: US-ASTRAZENECA-2012SE07489

PATIENT
  Age: 77 Year
  Sex: Male
  Weight: 63.5 kg

DRUGS (8)
  1. TOPROL-XL [Suspect]
     Dosage: 50 MG + 25 MG
     Route: 048
  2. FINESTARIDE [Concomitant]
  3. CARDURA [Concomitant]
  4. QUINAGLUTE/HCT [Concomitant]
  5. CALCIUM [Concomitant]
  6. TOPROL-XL [Suspect]
     Route: 048
     Dates: start: 20120202
  7. VITAMIN TAB [Concomitant]
  8. TOPROL-XL [Suspect]
     Indication: HYPERTENSION
     Route: 048
     Dates: start: 20120101, end: 20120201

REACTIONS (4)
  - HEART RATE INCREASED [None]
  - BLOOD PRESSURE INCREASED [None]
  - DRUG INEFFECTIVE [None]
  - WRONG TECHNIQUE IN DRUG USAGE PROCESS [None]
